FAERS Safety Report 10168725 (Version 1)
Quarter: 2014Q2

REPORT INFORMATION
  Report Type: Spontaneous
  Country: US (occurrence: None)
  Receive Date: 20140509
  Receipt Date: 20140509
  Transmission Date: 20141212
  Serious: Yes (Life-Threatening, Hospitalization)
  Sender: FDA-Public Use
  Company Number: ABR_01630_2014

PATIENT
  Age: 59 Year
  Sex: Male
  Weight: 58.97 kg

DRUGS (5)
  1. EDARBYCLOR [Suspect]
     Indication: HYPERTENSION
     Route: 048
     Dates: start: 20131209, end: 20131217
  2. RAMIPRIL [Concomitant]
  3. ASPIRIN [Concomitant]
  4. NIACIN [Concomitant]
  5. RED YEAST RICE [Concomitant]

REACTIONS (14)
  - Nocturia [None]
  - Muscle tightness [None]
  - Dizziness [None]
  - Loss of consciousness [None]
  - Fall [None]
  - Dysstasia [None]
  - Middle insomnia [None]
  - Dehydration [None]
  - Blood sodium decreased [None]
  - Hypotension [None]
  - Renal failure [None]
  - Alcohol interaction [None]
  - Asthenia [None]
  - Psychological trauma [None]
